FAERS Safety Report 10433783 (Version 2)
Quarter: 2014Q3

REPORT INFORMATION
  Report Type: Report from Study
  Country: CA (occurrence: CA)
  Receive Date: 20140905
  Receipt Date: 20140915
  Transmission Date: 20150326
  Serious: Yes (Hospitalization, Other)
  Sender: FDA-Public Use
  Company Number: CA-BRISTOL-MYERS SQUIBB COMPANY-21339064

PATIENT
  Age: 39 Year
  Sex: Female

DRUGS (2)
  1. CEFTIN [Suspect]
     Active Substance: CEFUROXIME AXETIL
  2. ERBITUX [Suspect]
     Active Substance: CETUXIMAB
     Indication: SQUAMOUS CELL CARCINOMA
     Route: 042
     Dates: start: 20140812

REACTIONS (12)
  - Dyspnoea [Recovering/Resolving]
  - Rash papular [Unknown]
  - Laryngeal oedema [Unknown]
  - Vomiting [Recovering/Resolving]
  - Insomnia [Unknown]
  - Heart rate increased [Unknown]
  - Vocal cord inflammation [Unknown]
  - Off label use [Unknown]
  - Swelling face [Recovered/Resolved]
  - Headache [Recovered/Resolved]
  - Productive cough [Unknown]
  - Eyelid oedema [Recovered/Resolved]

NARRATIVE: CASE EVENT DATE: 2014
